FAERS Safety Report 19885192 (Version 1)
Quarter: 2021Q3

REPORT INFORMATION
  Report Type: Spontaneous
  Country: US (occurrence: US)
  Receive Date: 20210924
  Receipt Date: 20210924
  Transmission Date: 20211014
  Serious: No
  Sender: FDA-Public Use
  Company Number: None

PATIENT

DRUGS (2)
  1. ATIVAN [Suspect]
     Active Substance: LORAZEPAM
     Route: 048
  2. ATIVAN [Suspect]
     Active Substance: LORAZEPAM
     Route: 048

REACTIONS (1)
  - Wrong technique in product usage process [None]
